FAERS Safety Report 25140592 (Version 1)
Quarter: 2025Q1

REPORT INFORMATION
  Report Type: Spontaneous
  Country: US (occurrence: US)
  Receive Date: 20250331
  Receipt Date: 20250331
  Transmission Date: 20250409
  Serious: No
  Sender: XTTRIUM
  Company Number: US-Xttrium Laboratories, Inc-2173956

PATIENT
  Sex: Female

DRUGS (1)
  1. CHLORHEXIDINE GLUCONATE [Suspect]
     Active Substance: CHLORHEXIDINE GLUCONATE
     Indication: Stomatitis
     Dates: start: 20250318, end: 20250320

REACTIONS (1)
  - Diarrhoea [Recovering/Resolving]
